FAERS Safety Report 4963403-2 (Version None)
Quarter: 2006Q2

REPORT INFORMATION
  Report Type: 
  Country: None (occurrence: None)
  Receive Date: 20060405
  Receipt Date: 20060327
  Transmission Date: 20061013
  Serious: Yes (Other)
  Sender: FDA-Public Use
  Company Number: JP-AVENTIS-200610990JP

PATIENT
  Sex: Male

DRUGS (3)
  1. LANTUS [Suspect]
     Route: 058
     Dates: start: 20040101
  2. OPTICLIK (INSULIN INJECTION PEN) [Suspect]
     Dates: start: 20051201
  3. HUMULIN N [Concomitant]
     Route: 058

REACTIONS (3)
  - ARTHRALGIA [None]
  - RETINAL HAEMORRHAGE [None]
  - SHOULDER PAIN [None]
